FAERS Safety Report 9862007 (Version 1)
Quarter: 2014Q1

REPORT INFORMATION
  Report Type: Spontaneous
  Country: DK (occurrence: DK)
  Receive Date: 20140203
  Receipt Date: 20140203
  Transmission Date: 20141002
  Serious: Yes (Life-Threatening, Hospitalization)
  Sender: FDA-Public Use
  Company Number: DK-JNJFOC-20140115167

PATIENT
  Age: 36 Year
  Sex: Female

DRUGS (3)
  1. CILEST [Suspect]
     Indication: CONTRACEPTION
     Route: 048
     Dates: start: 1993, end: 20130611
  2. MICROGYN [Suspect]
     Indication: CONTRACEPTION
     Dosage: CUMILATIVE DOSE TO FIRST REACTION WAS 7329675
     Route: 048
     Dates: start: 20130612, end: 20131110
  3. IBUMETIN [Suspect]
     Indication: POST-TRAUMATIC NECK SYNDROME
     Dosage: LAST DOSE OF DRUG TO START OF FIRST REACTION: 4072 DAYS
     Route: 048
     Dates: start: 20020917, end: 20131110

REACTIONS (1)
  - Cerebral infarction [Recovering/Resolving]
